FAERS Safety Report 22037404 (Version 1)
Quarter: 2023Q1

REPORT INFORMATION
  Report Type: Spontaneous
  Country: US (occurrence: US)
  Receive Date: 20230226
  Receipt Date: 20230226
  Transmission Date: 20230418
  Serious: No
  Sender: FDA-Public Use
  Company Number: US-BoehringerIngelheim-2023-BI-221054

PATIENT
  Age: 40 Year
  Sex: Female

DRUGS (6)
  1. JARDIANCE [Suspect]
     Active Substance: EMPAGLIFLOZIN
     Indication: Diabetes mellitus
  2. HUMULIN R [Suspect]
     Active Substance: INSULIN HUMAN
     Indication: Product used for unknown indication
  3. HUMULIN R [Suspect]
     Active Substance: INSULIN HUMAN
  4. HUMULIN R [Suspect]
     Active Substance: INSULIN HUMAN
     Dosage: EVEING
  5. HUMULIN R [Suspect]
     Active Substance: INSULIN HUMAN
     Dosage: MORNING
  6. HUMULIN 70/30 [Suspect]
     Active Substance: INSULIN HUMAN
     Indication: Product used for unknown indication

REACTIONS (3)
  - Blood glucose increased [Recovering/Resolving]
  - Fungal infection [Unknown]
  - Vulvovaginal mycotic infection [Unknown]
